FAERS Safety Report 13273770 (Version 3)
Quarter: 2017Q3

REPORT INFORMATION
  Report Type: Spontaneous
  Country: US (occurrence: US)
  Receive Date: 20170227
  Receipt Date: 20170816
  Transmission Date: 20171127
  Serious: Yes (Death, Hospitalization, Other)
  Sender: FDA-Public Use
  Company Number: US-009507513-1702USA009169

PATIENT
  Age: 62 Year
  Sex: Male
  Weight: 102.49 kg

DRUGS (2)
  1. KEYTRUDA [Suspect]
     Active Substance: PEMBROLIZUMAB
     Indication: LUNG CARCINOMA CELL TYPE UNSPECIFIED STAGE IV
     Dosage: 200 MG, Q 21 DAYS
     Route: 042
     Dates: start: 20161228, end: 20161228
  2. KEYTRUDA [Suspect]
     Active Substance: PEMBROLIZUMAB
     Dosage: 200 MG, Q 21 DAYS
     Route: 042
     Dates: start: 20170206, end: 20170206

REACTIONS (3)
  - Respiratory failure [Fatal]
  - Respiratory distress [Recovered/Resolved]
  - Product use in unapproved indication [Unknown]

NARRATIVE: CASE EVENT DATE: 20170104
